FAERS Safety Report 9330104 (Version 1)
Quarter: 2013Q2

REPORT INFORMATION
  Report Type: Spontaneous
  Country: FR (occurrence: FR)
  Receive Date: 20130604
  Receipt Date: 20130604
  Transmission Date: 20140414
  Serious: Yes (Other)
  Sender: FDA-Public Use
  Company Number: FR-ABBOTT-13P-056-1098863-00

PATIENT
  Age: 43 Year
  Sex: Male
  Weight: 74 kg

DRUGS (3)
  1. NORVIR [Suspect]
     Indication: HIV INFECTION
     Route: 048
     Dates: end: 20130302
  2. KIVEXA [Suspect]
     Indication: HIV INFECTION
     Route: 048
     Dates: end: 20130302
  3. PREZISTA [Suspect]
     Indication: HIV INFECTION
     Route: 048
     Dates: end: 20130302

REACTIONS (3)
  - Hypercholesterolaemia [Recovering/Resolving]
  - Hyperlipidaemia [Recovering/Resolving]
  - Blood pressure increased [Recovering/Resolving]
